FAERS Safety Report 23995877 (Version 2)
Quarter: 2024Q4

REPORT INFORMATION
  Report Type: Spontaneous
  Country: US (occurrence: US)
  Receive Date: 20240620
  Receipt Date: 20241014
  Transmission Date: 20250114
  Serious: No
  Sender: BIOVITRUM
  Company Number: US-BIOVITRUM-2024-US-008895

PATIENT
  Age: 77 Year
  Sex: Male

DRUGS (3)
  1. VONJO [Suspect]
     Active Substance: PACRITINIB
     Indication: Myelofibrosis
     Dosage: TWICE DAILY
     Route: 048
  2. VONJO [Suspect]
     Active Substance: PACRITINIB
     Dosage: TWICE DAILY
     Route: 048
     Dates: start: 202209
  3. PREDNISONE [Concomitant]
     Active Substance: PREDNISONE
     Indication: Product used for unknown indication

REACTIONS (3)
  - Platelet count decreased [Unknown]
  - Fatigue [Unknown]
  - Off label use [Not Recovered/Not Resolved]

NARRATIVE: CASE EVENT DATE: 20220901
